FAERS Safety Report 8374733-9 (Version None)
Quarter: 2012Q2

REPORT INFORMATION
  Report Type: 
  Country: None (occurrence: None)
  Receive Date: 20120521
  Receipt Date: 20120511
  Transmission Date: 20120825
  Serious: Yes (Other)
  Sender: FDA-Public Use
  Company Number: JP-VERTEX PHARMACEUTICALS INC.-AE-2012-007178

PATIENT
  Age: 65 Year
  Sex: Male

DRUGS (10)
  1. TELAVIC (TELAPREVIR) [Suspect]
     Indication: HEPATITIS C
     Route: 048
     Dates: start: 20120322, end: 20120418
  2. TELAVIC (TELAPREVIR) [Suspect]
     Route: 048
     Dates: start: 20120419, end: 20120510
  3. REBETOL [Concomitant]
     Route: 048
     Dates: start: 20120412
  4. HIRUDOID [Concomitant]
     Route: 061
  5. PEG-INTRON [Concomitant]
     Indication: HEPATITIS C
     Route: 051
     Dates: start: 20120322
  6. GASLON N_OD [Concomitant]
     Route: 048
  7. TELAVIC (TELAPREVIR) [Suspect]
     Route: 048
     Dates: start: 20120511
  8. RABEPRAZOLE SODIUM [Concomitant]
     Route: 048
  9. IPD [Concomitant]
     Route: 048
  10. REBETOL [Concomitant]
     Indication: HEPATITIS C
     Route: 048
     Dates: start: 20120322, end: 20120411

REACTIONS (2)
  - WHITE BLOOD CELL COUNT DECREASED [None]
  - ERYTHEMA MULTIFORME [None]
